FAERS Safety Report 4406081-3 (Version None)
Quarter: 2004Q3

REPORT INFORMATION
  Report Type: 
  Country: None (occurrence: None)
  Receive Date: 20040723
  Receipt Date: 20040419
  Transmission Date: 20050211
  Serious: No
  Sender: FDA-Public Use
  Company Number: US-GLAXOSMITHKLINE-A0507551A

PATIENT
  Age: 79 Year
  Sex: Female

DRUGS (12)
  1. AVANDIA [Suspect]
     Dosage: 8MG PER DAY
     Route: 048
  2. METFORMIN HCL [Concomitant]
  3. NORVASC [Concomitant]
  4. ACCUPRIL [Concomitant]
  5. HYDROCHLOROTHIAZIDE [Concomitant]
  6. VITAMIN E [Concomitant]
  7. OMEGA-3 [Concomitant]
  8. MULTIVITAMIN [Concomitant]
  9. COZAAR [Concomitant]
  10. CELEBREX [Concomitant]
  11. ASPIRIN [Concomitant]
  12. LIPITOR [Concomitant]

REACTIONS (3)
  - EYE SWELLING [None]
  - JOINT SWELLING [None]
  - OEDEMA PERIPHERAL [None]
